FAERS Safety Report 4618924-9 (Version None)
Quarter: 2005Q2

REPORT INFORMATION
  Report Type: 
  Country: None (occurrence: None)
  Receive Date: 20050310
  Receipt Date: 20030618
  Transmission Date: 20051028
  Serious: Yes (Hospitalization)
  Sender: FDA-Public Use
  Company Number: F03200300009

PATIENT
  Age: 60 Year
  Sex: Male

DRUGS (9)
  1. ELOXATIN [Suspect]
     Indication: COLON CANCER
     Dosage: 85 MG/M2 Q2W - INTRAVENOUS NOS
     Route: 042
     Dates: start: 20030422, end: 20030422
  2. TEZACITABINE - 10 MG [Suspect]
     Indication: COLON CANCER
     Dosage: 150 MG/M2 Q2W - INTRAVENOUS NO
     Route: 042
     Dates: start: 20030422, end: 20030422
  3. DIGOXIN [Concomitant]
  4. ATORVASTATIN CALCIUM [Concomitant]
  5. ENALAPRIL MALEATE [Concomitant]
  6. FUROSEMIDE [Concomitant]
  7. DEXAMETHASONE [Concomitant]
  8. ONDANSETRON HYDROCHLORIDE [Concomitant]
  9. LOPERAMIDE HYDROCHLORIDE [Concomitant]

REACTIONS (4)
  - DIARRHOEA [None]
  - NAUSEA [None]
  - PYREXIA [None]
  - VOMITING [None]
